FAERS Safety Report 10276669 (Version 1)
Quarter: 2014Q3

REPORT INFORMATION
  Report Type: Spontaneous
  Country: GB (occurrence: None)
  Receive Date: 20140701
  Receipt Date: 20140701
  Transmission Date: 20150326
  Serious: Yes (Hospitalization)
  Sender: FDA-Public Use
  Company Number: 2013-12224

PATIENT
  Age: 46 Year
  Sex: Female

DRUGS (4)
  1. AMLODIPINE [Concomitant]
     Active Substance: AMLODIPINE BESYLATE
  2. NORETHISTERONE (NORETHISTERONE) [Concomitant]
     Active Substance: NORETHINDRONE
  3. ULIPRISTAL ACETATE [Suspect]
     Active Substance: ULIPRISTAL ACETATE
     Indication: UTERINE LEIOMYOMA
     Route: 048
     Dates: start: 20130322, end: 20130614
  4. TRANEXAMIC (TRANEXAMIC) [Concomitant]

REACTIONS (3)
  - Drug interaction [None]
  - Irritable bowel syndrome [None]
  - Diverticulum [None]

NARRATIVE: CASE EVENT DATE: 20130511
